FAERS Safety Report 4698282-4 (Version None)
Quarter: 2005Q2

REPORT INFORMATION
  Report Type: 
  Country: None (occurrence: None)
  Receive Date: 20050621
  Receipt Date: 20050603
  Transmission Date: 20051028
  Serious: Yes (Hospitalization)
  Sender: FDA-Public Use
  Company Number: WAES 0505PHL00012

PATIENT
  Age: 45 Year
  Sex: Male

DRUGS (1)
  1. COZAAR [Suspect]
     Indication: CARDIAC FAILURE CONGESTIVE
     Dosage: PO
     Route: 048

REACTIONS (22)
  - ABDOMINAL DISTENSION [None]
  - ABDOMINAL PAIN UPPER [None]
  - BLOOD PRESSURE DECREASED [None]
  - CARDIAC FAILURE [None]
  - CHOLECYSTITIS [None]
  - CHOLECYSTITIS ACUTE [None]
  - CHOLELITHIASIS [None]
  - CREPITATIONS [None]
  - CYANOSIS [None]
  - DYSKINESIA [None]
  - DYSPNOEA PAROXYSMAL NOCTURNAL [None]
  - FATIGUE [None]
  - HAEMODIALYSIS [None]
  - LOW CARDIAC OUTPUT SYNDROME [None]
  - ORTHOPNOEA [None]
  - PERITONEAL DIALYSIS [None]
  - PNEUMONIA [None]
  - RENAL FAILURE ACUTE [None]
  - SUPRACLAVICULAR RETRACTION [None]
  - TACHYCARDIA [None]
  - TENDERNESS [None]
  - VOMITING [None]
